FAERS Safety Report 8013307-6 (Version None)
Quarter: 2011Q4

REPORT INFORMATION
  Report Type: 
  Country: None (occurrence: None)
  Receive Date: 20111229
  Receipt Date: 20111220
  Transmission Date: 20120403
  Serious: Yes (Other)
  Sender: FDA-Public Use
  Company Number: PHHY2011CA84526

PATIENT
  Sex: Male

DRUGS (5)
  1. CLONAZEPAM [Concomitant]
     Dosage: 0.5 MG, TID
     Route: 048
  2. CLOZARIL [Suspect]
     Dosage: 500 MG, HS
     Route: 048
  3. CLOZARIL [Suspect]
     Indication: SCHIZOPHRENIA
     Dosage: UNK
     Dates: start: 20020506
  4. PAXIL [Concomitant]
     Dosage: 60 MG, DAILY
  5. RISPERDAL [Concomitant]
     Dosage: 1 MG, BID
     Route: 048

REACTIONS (1)
  - BURSITIS [None]
